FAERS Safety Report 15919654 (Version 2)
Quarter: 2019Q3

REPORT INFORMATION
  Report Type: Spontaneous
  Country: JP (occurrence: JP)
  Receive Date: 20190205
  Receipt Date: 20190730
  Transmission Date: 20191004
  Serious: Yes (Hospitalization)
  Sender: FDA-Public Use
  Company Number: JP-ROCHE-2259604

PATIENT
  Age: 6 Decade
  Sex: Female

DRUGS (1)
  1. XOFLUZA [Suspect]
     Active Substance: BALOXAVIR MARBOXIL
     Indication: INFLUENZA
     Route: 048
     Dates: start: 20190121, end: 20190121

REACTIONS (4)
  - Dyspnoea [Unknown]
  - Cyanosis [Unknown]
  - Diarrhoea [Unknown]
  - Vomiting [Unknown]
